FAERS Safety Report 8962760 (Version 2)
Quarter: 2012Q4

REPORT INFORMATION
  Report Type: 
  Country: US (occurrence: US)
  Receive Date: 20121213
  Receipt Date: 20121228
  Transmission Date: 20130627
  Serious: Yes (Hospitalization)
  Sender: FDA-Public Use
  Company Number: US-PFIZER INC-2012272844

PATIENT
  Age: 58 Year
  Sex: Female
  Weight: 52.15 kg

DRUGS (36)
  1. BLINDED BUPROPION HCL [Suspect]
     Indication: SMOKING CESSATION THERAPY
     Dosage: Varenicline, 2x/day
     Route: 048
     Dates: start: 20120723, end: 20121021
  2. BLINDED BUPROPION HCL [Suspect]
     Indication: SMOKING CESSATION THERAPY
     Dosage: Varenicline, 2x/day
     Route: 048
     Dates: start: 20120723, end: 20121021
  3. BLINDED NICOTINE [Suspect]
     Indication: SMOKING CESSATION THERAPY
     Dosage: Varenicline, 2x/day
     Route: 048
     Dates: start: 20120723, end: 20121021
  4. BLINDED NICOTINE [Suspect]
     Indication: SMOKING CESSATION THERAPY
     Dosage: Varenicline, 2x/day
     Route: 048
     Dates: start: 20120723, end: 20121021
  5. BLINDED NO SUBJECT DRUG [Suspect]
     Indication: SMOKING CESSATION THERAPY
     Dosage: Varenicline, 2x/day
     Route: 048
     Dates: start: 20120723, end: 20121021
  6. BLINDED PLACEBO [Suspect]
     Indication: SMOKING CESSATION THERAPY
     Dosage: Varenicline, 2x/day
     Route: 048
     Dates: start: 20120723, end: 20121021
  7. BLINDED PLACEBO [Suspect]
     Indication: SMOKING CESSATION THERAPY
     Dosage: Varenicline, 2x/day
     Route: 048
     Dates: start: 20120723, end: 20121021
  8. BLINDED PLACEBO [Suspect]
     Indication: SMOKING CESSATION THERAPY
     Dosage: Varenicline, 2x/day
     Route: 048
     Dates: start: 20120723, end: 20121021
  9. BLINDED VARENICLINE TARTRATE [Suspect]
     Indication: SMOKING CESSATION THERAPY
     Dosage: Varenicline, 2x/day
     Route: 048
     Dates: start: 20120723, end: 20121021
  10. BLINDED VARENICLINE TARTRATE [Suspect]
     Indication: SMOKING CESSATION THERAPY
     Dosage: Varenicline, 2x/day
     Route: 048
     Dates: start: 20120723, end: 20121021
  11. BLINDED BUPROPION HCL [Suspect]
     Dosage: Bupropion, 2x/day
     Route: 048
     Dates: start: 20120723, end: 20121021
  12. BLINDED BUPROPION HCL [Suspect]
     Dosage: Bupropion, 2x/day
     Route: 048
     Dates: start: 20120723, end: 20121021
  13. BLINDED NICOTINE [Suspect]
     Dosage: Bupropion, 2x/day
     Route: 048
     Dates: start: 20120723, end: 20121021
  14. BLINDED NICOTINE [Suspect]
     Dosage: Bupropion, 2x/day
     Route: 048
     Dates: start: 20120723, end: 20121021
  15. BLINDED NO SUBJECT DRUG [Suspect]
     Dosage: Bupropion, 2x/day
     Route: 048
     Dates: start: 20120723, end: 20121021
  16. BLINDED PLACEBO [Suspect]
     Dosage: Bupropion, 2x/day
     Route: 048
     Dates: start: 20120723, end: 20121021
  17. BLINDED PLACEBO [Suspect]
     Dosage: Bupropion, 2x/day
     Route: 048
     Dates: start: 20120723, end: 20121021
  18. BLINDED PLACEBO [Suspect]
     Dosage: Bupropion, 2x/day
     Route: 048
     Dates: start: 20120723, end: 20121021
  19. BLINDED VARENICLINE TARTRATE [Suspect]
     Dosage: Bupropion, 2x/day
     Route: 048
     Dates: start: 20120723, end: 20121021
  20. BLINDED VARENICLINE TARTRATE [Suspect]
     Dosage: Bupropion, 2x/day
     Route: 048
     Dates: start: 20120723, end: 20121021
  21. BLINDED BUPROPION HCL [Suspect]
     Dosage: nicotine, once daily
     Route: 062
     Dates: start: 20120730, end: 20121021
  22. BLINDED BUPROPION HCL [Suspect]
     Dosage: nicotine, once daily
     Route: 062
     Dates: start: 20120730, end: 20121021
  23. BLINDED NICOTINE [Suspect]
     Dosage: nicotine, once daily
     Route: 062
     Dates: start: 20120730, end: 20121021
  24. BLINDED NICOTINE [Suspect]
     Dosage: nicotine, once daily
     Route: 062
     Dates: start: 20120730, end: 20121021
  25. BLINDED NO SUBJECT DRUG [Suspect]
     Dosage: nicotine, once daily
     Route: 062
     Dates: start: 20120730, end: 20121021
  26. BLINDED PLACEBO [Suspect]
     Dosage: nicotine, once daily
     Route: 062
     Dates: start: 20120730, end: 20121021
  27. BLINDED PLACEBO [Suspect]
     Dosage: nicotine, once daily
     Route: 062
     Dates: start: 20120730, end: 20121021
  28. BLINDED PLACEBO [Suspect]
     Dosage: nicotine, once daily
     Route: 062
     Dates: start: 20120730, end: 20121021
  29. BLINDED VARENICLINE TARTRATE [Suspect]
     Dosage: nicotine, once daily
     Route: 062
     Dates: start: 20120730, end: 20121021
  30. BLINDED VARENICLINE TARTRATE [Suspect]
     Dosage: nicotine, once daily
     Route: 062
     Dates: start: 20120730, end: 20121021
  31. MORPHINE [Concomitant]
     Dosage: UNK
  32. SYNTHROID [Concomitant]
     Indication: HYPOTHYROIDISM
     Dosage: 0.88 mg, QD
     Route: 048
     Dates: start: 2000
  33. VIVELLE DOT PATCH [Concomitant]
     Indication: HYPOESTROGENEMIA
     Dosage: 0.05 mg, 2 x week
     Route: 061
     Dates: start: 1992
  34. VALIUM [Concomitant]
     Indication: MUSCLE SPASMS
     Dosage: 10 mg, PRN
     Route: 048
     Dates: start: 2011
  35. ALAVERT [Concomitant]
     Indication: SEASONAL ALLERGY
     Dosage: 10 mg, as needed
     Route: 048
     Dates: start: 2000
  36. ALEVE [Concomitant]
     Indication: OSTEOARTHRITIS
     Dosage: 220 mg, as needed
     Route: 048
     Dates: start: 201207

REACTIONS (1)
  - Migraine [Recovered/Resolved]
